FAERS Safety Report 6745602-2 (Version None)
Quarter: 2010Q2

REPORT INFORMATION
  Report Type: 
  Country: None (occurrence: None)
  Receive Date: 20100528
  Receipt Date: 20100517
  Transmission Date: 20101027
  Serious: No
  Sender: FDA-Public Use
  Company Number: US-B.I. PHARMACEUTICALS,INC./RIDGEFIELD-2010-BP-05084BP

PATIENT
  Sex: Female

DRUGS (8)
  1. SPIRIVA [Suspect]
     Indication: CHRONIC OBSTRUCTIVE PULMONARY DISEASE
     Dosage: 18 MCG
     Route: 055
     Dates: start: 20100401
  2. ATENOLOL [Concomitant]
     Indication: HYPERTENSION
     Route: 048
  3. LIPITOR [Concomitant]
     Indication: BLOOD CHOLESTEROL INCREASED
     Route: 048
  4. PAXIL [Concomitant]
     Indication: DEPRESSION
     Route: 048
  5. PAXIL [Concomitant]
     Indication: ANXIETY
  6. ATIVAN [Concomitant]
     Indication: SLEEP DISORDER
  7. DOXAZOSIN MESYLATE [Concomitant]
     Indication: HYPERTENSION
  8. ASPIRIN [Concomitant]

REACTIONS (8)
  - ABNORMAL DREAMS [None]
  - CATARACT [None]
  - CONSTIPATION [None]
  - DRY MOUTH [None]
  - DYSPHONIA [None]
  - GLAUCOMA [None]
  - PROCTALGIA [None]
  - RECTAL HAEMORRHAGE [None]
